FAERS Safety Report 4612297-3 (Version None)
Quarter: 2005Q2

REPORT INFORMATION
  Report Type: 
  Country: None (occurrence: None)
  Receive Date: 20050308
  Receipt Date: 20041214
  Transmission Date: 20051028
  Serious: No
  Sender: FDA-Public Use
  Company Number: 2004UW25451

PATIENT
  Age: 65 Year
  Sex: Female

DRUGS (2)
  1. CRESTOR [Suspect]
     Dosage: 10 MG PO
     Route: 048
  2. UNSPECIFIED [Suspect]
     Indication: HEPATIC STEATOSIS

REACTIONS (2)
  - HEPATITIS [None]
  - TRANSAMINASES INCREASED [None]
